FAERS Safety Report 8559723 (Version 3)
Quarter: 2013Q3

REPORT INFORMATION
  Report Type: Spontaneous
  Country: FR (occurrence: None)
  Receive Date: 20120503
  Receipt Date: 20130802
  Transmission Date: 20140515
  Serious: Yes (Hospitalization)
  Sender: FDA-Public Use
  Company Number: 2012-1844

PATIENT
  Age: 15 Year
  Sex: Male
  Weight: 41.9 kg

DRUGS (1)
  1. INCRELEX [Suspect]
     Indication: FAILURE TO THRIVE
     Dosage: 0.08;0.16;0.18;0.094;0.105;0.11 MG/KG (0.04;0.04;0.08;0.090.094;0;105 MG/KG, 2 IN 1 D), SUBCUTANEOUS
     Route: 058
     Dates: start: 20090627, end: 20090719

REACTIONS (2)
  - Testicular torsion [None]
  - Echinococciasis [None]
